FAERS Safety Report 15487491 (Version 1)
Quarter: 2018Q4

REPORT INFORMATION
  Report Type: Spontaneous
  Country: US (occurrence: US)
  Receive Date: 20181003
  Receipt Date: 20181003
  Transmission Date: 20190205
  Serious: No
  Sender: FDA-Public Use
  Company Number: None

PATIENT
  Age: 65 Year
  Sex: Female
  Weight: 71.1 kg

DRUGS (16)
  1. ALLEGRA ALLERGY [Concomitant]
     Active Substance: FEXOFENADINE HYDROCHLORIDE
  2. STOOL SOFTENER (DOCUSATE) [Concomitant]
     Active Substance: DOCUSATE
  3. PROAIR HFA [Concomitant]
     Active Substance: ALBUTEROL SULFATE
  4. ASPIRIN LOW DOSE [Concomitant]
     Active Substance: ASPIRIN
  5. LOSSRTAN POTASSIUM HCTZ [Concomitant]
  6. FENOFIBRATE. [Concomitant]
     Active Substance: FENOFIBRATE
  7. TUMS [Concomitant]
     Active Substance: CALCIUM CARBONATE
  8. VITAMIN D3 [Concomitant]
     Active Substance: CHOLECALCIFEROL
  9. BREO ELLIPTA [Suspect]
     Active Substance: FLUTICASONE FUROATE\VILANTEROL TRIFENATATE
     Indication: ASTHMA
     Dosage: ?          QUANTITY:1 DF DOSAGE FORM;?
     Route: 055
     Dates: start: 20180914, end: 20180916
  10. METOPROLOL SUCCINATE ER [Concomitant]
     Active Substance: METOPROLOL SUCCINATE
  11. MUCINEX DM [Concomitant]
     Active Substance: DEXTROMETHORPHAN HYDROBROMIDE\GUAIFENESIN
  12. COMPLETE WOMEN^S DAILY VITAMIN [Concomitant]
  13. SERTRALINE HCL [Concomitant]
     Active Substance: SERTRALINE HYDROCHLORIDE
  14. COQ 10 [Concomitant]
     Active Substance: UBIDECARENONE
  15. OMEGA 3 FISH OIL [Concomitant]
     Active Substance: FISH OIL\OMEGA-3 FATTY ACIDS
  16. PROBIOTIC [Concomitant]
     Active Substance: PROBIOTICS NOS

REACTIONS (2)
  - Asthma [None]
  - Palpitations [None]

NARRATIVE: CASE EVENT DATE: 20180914
